FAERS Safety Report 9173590 (Version 1)
Quarter: 2013Q1

REPORT INFORMATION
  Report Type: Spontaneous
  Country: NL (occurrence: None)
  Receive Date: 20130315
  Receipt Date: 20130315
  Transmission Date: 20140127
  Serious: Yes (Hospitalization)
  Sender: FDA-Public Use
  Company Number: 2013-0994

PATIENT
  Age: 70 Year
  Sex: Female

DRUGS (1)
  1. SOMATULINE AUTOGEL [Suspect]
     Indication: NEUROENDOCRINE TUMOUR
     Dosage: 120 MG, 1 IN 21 D

REACTIONS (10)
  - Decreased appetite [None]
  - White blood cell count increased [None]
  - Hepatic pain [None]
  - Liver disorder [None]
  - Cardiac valve disease [None]
  - Lung disorder [None]
  - Pancreatic neuroendocrine tumour [None]
  - Oedema peripheral [None]
  - Dyspnoea [None]
  - Malaise [None]
